FAERS Safety Report 24433090 (Version 1)
Quarter: 2024Q4

REPORT INFORMATION
  Report Type: Report from Study
  Country: US (occurrence: US)
  Receive Date: 20241014
  Receipt Date: 20241014
  Transmission Date: 20250114
  Serious: Yes (Hospitalization)
  Sender: BAYER HEALTHCARE PHARMACEUTICALS INC.
  Company Number: US-BAYER-2024A144230

PATIENT
  Age: 87 Year
  Sex: Female
  Weight: 61.224 kg

DRUGS (11)
  1. ADEMPAS [Suspect]
     Active Substance: RIOCIGUAT
     Indication: Pulmonary arterial hypertension
     Dosage: UNK
     Dates: start: 20240812
  2. ADEMPAS [Suspect]
     Active Substance: RIOCIGUAT
     Indication: Pulmonary arterial hypertension
     Dosage: 2.5 MG, TID
     Route: 048
     Dates: start: 2024
  3. ORENITRAM [Suspect]
     Active Substance: TREPROSTINIL
  4. MELATONIN [Concomitant]
     Active Substance: MELATONIN
  5. CALCIUM [Concomitant]
     Active Substance: CALCIUM
  6. FUROSEMIDE [Concomitant]
     Active Substance: FUROSEMIDE
  7. PANTOPRAZOLE SODIUM [Concomitant]
     Active Substance: PANTOPRAZOLE SODIUM
  8. ELIQUIS [Concomitant]
     Active Substance: APIXABAN
  9. VITAMINS [Concomitant]
     Active Substance: VITAMINS
  10. OXYGEN [Concomitant]
     Active Substance: OXYGEN
  11. TYLENOL PM EXTRA STRENGTH [Concomitant]
     Active Substance: ACETAMINOPHEN\DIPHENHYDRAMINE HYDROCHLORIDE

REACTIONS (2)
  - Abdominal pain upper [None]
  - Abdominal pain upper [None]

NARRATIVE: CASE EVENT DATE: 20240928
